FAERS Safety Report 4685710-3 (Version None)
Quarter: 2005Q2

REPORT INFORMATION
  Report Type: 
  Country: None (occurrence: None)
  Receive Date: 20050608
  Receipt Date: 20050520
  Transmission Date: 20051028
  Serious: Yes (Hospitalization, Disabling)
  Sender: FDA-Public Use
  Company Number: 230005E05RUS

PATIENT
  Age: 38 Year
  Sex: Female

DRUGS (9)
  1. REBIF [Suspect]
     Indication: RELAPSING-REMITTING MULTIPLE SCLEROSIS
     Dosage: 0.5 M;, 3 IN 1 WEEKS, SUBCUTANEOUS
     Route: 058
     Dates: start: 20041215, end: 20050325
  2. DEXAMETHASONE [Suspect]
     Indication: RELAPSING-REMITTING MULTIPLE SCLEROSIS
     Dosage: INTRAMUSCULAR
     Route: 030
     Dates: start: 20050305, end: 20050320
  3. IMMUNOGLOBULINS [Suspect]
     Dosage: 3 ML, INTRAMUSCULAR
     Route: 030
     Dates: start: 20050325, end: 20050327
  4. THIAMINE HCL [Suspect]
     Dosage: INTRAMSUCULAR
     Route: 030
     Dates: start: 20050301, end: 20050301
  5. CYANOCOBALAMIN [Suspect]
     Dosage: INTRAMUSCULAR
     Route: 030
     Dates: start: 20050301, end: 20050301
  6. . [Concomitant]
  7. . [Concomitant]
  8. . [Concomitant]
  9. . [Concomitant]

REACTIONS (4)
  - INJECTION SITE ABSCESS [None]
  - MULTIPLE SCLEROSIS RELAPSE [None]
  - PAIN [None]
  - POST PROCEDURAL CELLULITIS [None]
